FAERS Safety Report 8597485-6 (Version None)
Quarter: 2012Q3

REPORT INFORMATION
  Report Type: 
  Country: None (occurrence: None)
  Receive Date: 20120816
  Receipt Date: 20120626
  Transmission Date: 20120928
  Serious: Yes (Hospitalization, Other)
  Sender: FDA-Public Use
  Company Number: US-JNJFOC-20120614543

PATIENT
  Sex: Male
  Weight: 58.97 kg

DRUGS (17)
  1. ZYRTEC [Suspect]
     Dosage: SOMETIMES 2 TABLETS
     Route: 048
  2. ANTIDIARRHEAL [Concomitant]
     Indication: PRODUCT USED FOR UNKNOWN INDICATION
     Route: 065
  3. VITAMIN D [Concomitant]
     Indication: PRODUCT USED FOR UNKNOWN INDICATION
     Route: 065
  4. DIPHENHYDRAMINE HCL [Concomitant]
     Indication: SLEEP DISORDER THERAPY
     Route: 065
  5. ZYRTEC [Suspect]
     Dosage: SOMETIMES 2 TABLETS
     Route: 048
  6. PANTOPRAZOLE [Concomitant]
     Indication: HYPERCHLORHYDRIA
     Route: 065
  7. DIPHENHYDRAMINE HCL [Concomitant]
     Indication: ARTHRALGIA
     Route: 065
  8. ZYRTEC [Suspect]
     Indication: SINUS DISORDER
     Dosage: SOMETIMES 2 TABLETS
     Route: 048
  9. ACETAMINOPHEN [Concomitant]
     Indication: ARTHRITIS
     Route: 065
  10. ZYRTEC [Suspect]
     Indication: SEASONAL ALLERGY
     Dosage: SOMETIMES 2 TABLETS
     Route: 048
  11. ZYRTEC [Suspect]
     Dosage: SOMETIMES 2 TABLETS
     Route: 048
  12. ZYRTEC [Suspect]
     Dosage: SOMETIMES 2 TABLETS
     Route: 048
  13. ZYRTEC [Suspect]
     Dosage: SOMETIMES 2 TABLETS
     Route: 048
  14. PAROXETINE [Concomitant]
     Indication: PRODUCT USED FOR UNKNOWN INDICATION
     Route: 065
  15. ZYRTEC [Suspect]
     Indication: ALLERGY TO PLANTS
     Dosage: SOMETIMES 2 TABLETS
     Route: 048
  16. SIMVASTATIN [Concomitant]
     Indication: PRODUCT USED FOR UNKNOWN INDICATION
     Route: 065
  17. STOOL SOFTENER [Concomitant]
     Indication: PRODUCT USED FOR UNKNOWN INDICATION
     Route: 065

REACTIONS (8)
  - OFF LABEL USE [None]
  - PRODUCT PACKAGING ISSUE [None]
  - WRONG DRUG ADMINISTERED [None]
  - THERAPEUTIC RESPONSE UNEXPECTED [None]
  - OVERDOSE [None]
  - DIVERTICULITIS [None]
  - ULCER HAEMORRHAGE [None]
  - ONYCHOCLASIS [None]
